FAERS Safety Report 6125682-8 (Version None)
Quarter: 2009Q1

REPORT INFORMATION
  Report Type: 
  Country: None (occurrence: None)
  Receive Date: 20090320
  Receipt Date: 20090310
  Transmission Date: 20090719
  Serious: Yes (Other)
  Sender: FDA-Public Use
  Company Number: PHHY2008MX00668

PATIENT
  Sex: Female

DRUGS (1)
  1. ZELMAC [Suspect]
     Indication: IRRITABLE BOWEL SYNDROME
     Dosage: 6 MG
     Route: 048
     Dates: start: 20070601, end: 20071201

REACTIONS (4)
  - BLINDNESS UNILATERAL [None]
  - FALL [None]
  - HIP FRACTURE [None]
  - RETINAL HAEMORRHAGE [None]
